FAERS Safety Report 18149546 (Version 1)
Quarter: 2020Q3

REPORT INFORMATION
  Report Type: Spontaneous
  Country: GB (occurrence: GB)
  Receive Date: 20200814
  Receipt Date: 20200814
  Transmission Date: 20201103
  Serious: Yes (Hospitalization)
  Sender: FDA-Public Use
  Company Number: GB-TEVA-2020-GB-1813628

PATIENT
  Age: 76 Year
  Sex: Male
  Weight: 85 kg

DRUGS (27)
  1. COLECALCIFEROL [Concomitant]
     Active Substance: CHOLECALCIFEROL
     Dosage: 1 DOSAGE FORM
     Dates: start: 20191125
  2. LANSOPRAZOLE. [Concomitant]
     Active Substance: LANSOPRAZOLE
     Dosage: 1 DOSAGE FORM
     Dates: start: 20191125
  3. SODIUM CHLORIDE. [Concomitant]
     Active Substance: SODIUM CHLORIDE
     Dosage: 5 ML
     Dates: start: 20200716
  4. FINASTERIDE. [Concomitant]
     Active Substance: FINASTERIDE
     Dosage: 1 DOSAGE FORM
     Dates: start: 20191125
  5. RIVASTIGMINE. [Concomitant]
     Active Substance: RIVASTIGMINE
     Dosage: 1 DOSAGE FORM
     Dates: start: 20191125
  6. RASAGILINE. [Concomitant]
     Active Substance: RASAGILINE
     Dosage: 1 DOSAGE FORM
     Dates: start: 20191125
  7. TIMODINE [Concomitant]
     Dosage: 1 APPLICATION, TO BE TAKEN THREE TIMES DAILY
     Dates: start: 20200701, end: 20200715
  8. FUROSEMIDE. [Concomitant]
     Active Substance: FUROSEMIDE
     Dosage: TAKE ONE TABLET TWICE WEEKLY, 2 DOSAGE FORMS
     Dates: start: 20200512, end: 20200609
  9. CETIRIZINE [Concomitant]
     Active Substance: CETIRIZINE HYDROCHLORIDE
     Dosage: 1 DOSAGE FORM
     Dates: start: 20200717
  10. TINZAPARIN [Concomitant]
     Active Substance: TINZAPARIN
     Dosage: UNIT DOSE: 4,500 IU
     Dates: start: 20200630, end: 20200701
  11. PARACETAMOL [Concomitant]
     Active Substance: ACETAMINOPHEN
     Dosage: 2 DOSAGE FORMS
     Dates: start: 20191125
  12. TRIMETHOPRIM. [Suspect]
     Active Substance: TRIMETHOPRIM
     Dosage: 200MG
     Dates: start: 20191125
  13. MIRTAZAPINE. [Concomitant]
     Active Substance: MIRTAZAPINE
     Dosage: 1 DF
     Dates: start: 20191125
  14. CO?BENELDOPA [Concomitant]
     Active Substance: BENSERAZIDE HYDROCHLORIDE\LEVODOPA
     Dosage: 2 DOSAGE FORMS
     Dates: start: 20191125
  15. TAMSULOSIN HYDROCHLORIDE. [Concomitant]
     Active Substance: TAMSULOSIN HYDROCHLORIDE
     Dosage: 1 DOSAGE FORM
     Dates: start: 20191125
  16. TETRABENAZINE. [Concomitant]
     Active Substance: TETRABENAZINE
     Dosage: 1.5 DOSAGE FORM
     Dates: start: 20191125
  17. MACROGOL [Concomitant]
     Active Substance: POLYETHYLENE GLYCOLS
     Dosage: 1?2 SACHET
     Dates: start: 20200717
  18. MIRABEGRON [Concomitant]
     Active Substance: MIRABEGRON
     Dosage: 1 DOSAGE FORM
     Dates: start: 20191125
  19. AMOXICILLIN. [Concomitant]
     Active Substance: AMOXICILLIN
     Dosage: FOR FOUR MORE DAYS, 3 DOSAGE FORMS
     Dates: start: 20200701, end: 20200715
  20. FERROUS FUMARATE [Concomitant]
     Active Substance: FERROUS FUMARATE
     Dosage: 1 DOSAGE FORM
     Dates: start: 20191125, end: 20200717
  21. ATORVASTATIN [Concomitant]
     Active Substance: ATORVASTATIN
     Dosage: 1 DOSAGE FORM
     Dates: start: 20191125
  22. NITROFURANTOIN. [Concomitant]
     Active Substance: NITROFURANTOIN
     Dosage: FIRST LINE: 100MG 12 HOURLY FOR 7 DAYS, UNIT DOSE: 100MG
     Dates: start: 20191125
  23. CLOPIDOGREL [Concomitant]
     Active Substance: CLOPIDOGREL BISULFATE
     Dosage: 1 DOSAGE FORM
     Dates: start: 20191125
  24. PREDNISOLONE. [Concomitant]
     Active Substance: PREDNISOLONE
     Dosage: 8 DOSAGE FORMS
     Dates: start: 20200717, end: 20200717
  25. FLUCLOXACILLIN [Concomitant]
     Active Substance: FLUCLOXACILLIN
     Dosage: 4 DOSAGE FORMS
     Dates: start: 20200516, end: 20200530
  26. ALENDRONIC ACID [Concomitant]
     Active Substance: ALENDRONIC ACID
     Dosage: 1 DOSAGE FORM
     Dates: start: 20191125
  27. CODEINE PHOSPHATE [Concomitant]
     Active Substance: CODEINE PHOSPHATE
     Dosage: 1?2 TABLET
     Dates: start: 20200627, end: 20200701

REACTIONS (2)
  - Swelling of eyelid [Recovering/Resolving]
  - Rash [Recovering/Resolving]

NARRATIVE: CASE EVENT DATE: 20200717
